FAERS Safety Report 15390606 (Version 1)
Quarter: 2018Q3

REPORT INFORMATION
  Report Type: Spontaneous
  Country: US (occurrence: US)
  Receive Date: 20180909
  Receipt Date: 20180909
  Transmission Date: 20181010
  Serious: Yes (Disabling)
  Sender: FDA-Public Use
  Company Number: None

PATIENT
  Age: 52 Year
  Sex: Female
  Weight: 56.25 kg

DRUGS (13)
  1. QUINAPRIL. [Concomitant]
     Active Substance: QUINAPRIL
  2. BENADRYL [Concomitant]
     Active Substance: DIPHENHYDRAMINE HYDROCHLORIDE
  3. PROBIOTIC [Suspect]
     Active Substance: PROBIOTICS NOS
  4. CLONEZAPEM [Concomitant]
  5. MUCINEX [Concomitant]
     Active Substance: GUAIFENESIN
  6. SIMVISTATIN [Concomitant]
     Active Substance: SIMVASTATIN
  7. VITAMIN D [Suspect]
     Active Substance: CHOLECALCIFEROL
  8. BOTOX [Suspect]
     Active Substance: ONABOTULINUMTOXINA
     Indication: MIGRAINE
     Dosage: ?          OTHER FREQUENCY:EVERY 12 WEEKS;?
     Route: 030
     Dates: start: 20150901
  9. DEXILANT [Concomitant]
     Active Substance: DEXLANSOPRAZOLE
  10. BAYER BACK AND BODY EXTRA STRENGTH [Concomitant]
     Active Substance: ASPIRIN\CAFFEINE
  11. GINKO [Suspect]
     Active Substance: GINKGO
  12. PRISTIQ EXTENDED?RELEASE [Concomitant]
     Active Substance: DESVENLAFAXINE SUCCINATE
  13. AVONEX [Concomitant]
     Active Substance: INTERFERON BETA-1A

REACTIONS (5)
  - Nausea [None]
  - Nasal congestion [None]
  - Feeling abnormal [None]
  - Dizziness [None]
  - Migraine [None]

NARRATIVE: CASE EVENT DATE: 20180907
